FAERS Safety Report 6112251-9 (Version None)
Quarter: 2009Q1

REPORT INFORMATION
  Report Type: 
  Country: None (occurrence: None)
  Receive Date: 20090310
  Receipt Date: 20090224
  Transmission Date: 20090719
  Serious: Yes (Hospitalization)
  Sender: FDA-Public Use
  Company Number: 2009PL000064

PATIENT
  Age: 16 Year

DRUGS (1)
  1. AZATHIOPRINE [Suspect]
     Indication: CROHN'S DISEASE
     Dosage: 125 MG;QD
     Dates: start: 20070514

REACTIONS (6)
  - DRUG RASH WITH EOSINOPHILIA AND SYSTEMIC SYMPTOMS [None]
  - INFLAMMATION [None]
  - NEUTROPHIL COUNT INCREASED [None]
  - PANCREATITIS [None]
  - PYREXIA [None]
  - RASH PUSTULAR [None]
